FAERS Safety Report 7352856-0 (Version None)
Quarter: 2011Q1

REPORT INFORMATION
  Report Type: 
  Country: None (occurrence: None)
  Receive Date: 20110304
  Receipt Date: 20110218
  Transmission Date: 20110831
  Serious: Yes (Hospitalization)
  Sender: FDA-Public Use
  Company Number: DSM-2011-00236

PATIENT
  Sex: Female

DRUGS (1)
  1. VOTUM PULS (HYDROCHLOROTHIAZIDE , OLMESARTAN MEDOXOMIL) (TABLET) (HYDR [Suspect]
     Indication: PRODUCT USED FOR UNKNOWN INDICATION
     Dosage: ORAL
     Route: 048

REACTIONS (4)
  - DEHYDRATION [None]
  - HYPOKALAEMIA [None]
  - VOMITING [None]
  - DIARRHOEA [None]
